FAERS Safety Report 8346308-9 (Version None)
Quarter: 2012Q2

REPORT INFORMATION
  Report Type: 
  Country: None (occurrence: None)
  Receive Date: 20120509
  Receipt Date: 20120228
  Transmission Date: 20120825
  Serious: No
  Sender: FDA-Public Use
  Company Number: US-COVIDIEN/TYCO HEALTHCARE/MALLINCKRODT-T201200837

PATIENT
  Sex: Male

DRUGS (1)
  1. PENNSAID [Suspect]
     Indication: ARTHRALGIA
     Dosage: UNK, ONE APPLICATION
     Route: 061
     Dates: start: 20120201, end: 20120201

REACTIONS (1)
  - APPLICATION SITE PAIN [None]
